FAERS Safety Report 7998405-5 (Version None)
Quarter: 2011Q4

REPORT INFORMATION
  Report Type: 
  Country: None (occurrence: None)
  Receive Date: 20111221
  Receipt Date: 20110926
  Transmission Date: 20120403
  Serious: No
  Sender: FDA-Public Use
  Company Number: US-GLAXOSMITHKLINE-A0946018A

PATIENT
  Age: 79 Year
  Sex: Female

DRUGS (2)
  1. LOVAZA [Suspect]
     Indication: PRODUCT USED FOR UNKNOWN INDICATION
     Dosage: 4CAP PER DAY
     Route: 048
     Dates: start: 20110101, end: 20110101
  2. OTHER MEDICATIONS [Concomitant]

REACTIONS (4)
  - PRURITUS [None]
  - ADVERSE EVENT [None]
  - DIZZINESS [None]
  - ASTHENIA [None]
